FAERS Safety Report 17894481 (Version 1)
Quarter: 2020Q2

REPORT INFORMATION
  Report Type: Spontaneous
  Country: DE (occurrence: DE)
  Receive Date: 20200615
  Receipt Date: 20200615
  Transmission Date: 20200714
  Serious: Yes (Other)
  Sender: FDA-Public Use
  Company Number: DE-AUROBINDO-AUR-APL-2020-028657

PATIENT
  Sex: Male

DRUGS (4)
  1. HARZOL [Suspect]
     Active Substance: .BETA.-SITOSTEROL
     Indication: PRODUCT USED FOR UNKNOWN INDICATION
     Dosage: 10 MILLIGRAM, 3 TIMES A DAY
     Route: 048
     Dates: start: 20200508, end: 20200519
  2. TAMSULOSIN [Suspect]
     Active Substance: TAMSULOSIN
     Indication: PRODUCT USED FOR UNKNOWN INDICATION
     Dosage: INTAKE FOR SEVERAL YEARS
     Route: 048
  3. QUILONIUM-R [Suspect]
     Active Substance: LITHIUM CARBONATE
     Indication: PRODUCT USED FOR UNKNOWN INDICATION
     Dosage: UNK
     Route: 065
  4. PANKREATIN [Concomitant]
     Active Substance: PANCRELIPASE
     Indication: PANCREATIC DISORDER
     Dosage: UNK
     Route: 065

REACTIONS (1)
  - Psychogenic visual disorder [Recovering/Resolving]

NARRATIVE: CASE EVENT DATE: 20200527
